FAERS Safety Report 7508651-2 (Version None)
Quarter: 2011Q2

REPORT INFORMATION
  Report Type: 
  Country: None (occurrence: None)
  Receive Date: 20110527
  Receipt Date: 20100419
  Transmission Date: 20111010
  Serious: No
  Sender: FDA-Public Use
  Company Number: A0855688A

PATIENT
  Sex: Male

DRUGS (1)
  1. VENTOLIN [Suspect]
     Dates: start: 20100406

REACTIONS (2)
  - DYSPNOEA [None]
  - DEVICE MISUSE [None]
